FAERS Safety Report 4794923-1 (Version None)
Quarter: 2005Q4

REPORT INFORMATION
  Report Type: 
  Country: None (occurrence: None)
  Receive Date: 20051006
  Receipt Date: 20050922
  Transmission Date: 20060501
  Serious: Yes (Disabling)
  Sender: FDA-Public Use
  Company Number: 8012275

PATIENT
  Age: 20 Year
  Sex: Male
  Weight: 80 kg

DRUGS (2)
  1. KEPPRA [Suspect]
     Indication: PARTIAL SEIZURES
     Dosage: 3 G /D PO
     Route: 048
     Dates: start: 20050401
  2. LAMICTAL [Concomitant]

REACTIONS (3)
  - DYSKINESIA [None]
  - TONGUE DISORDER [None]
  - VISUAL DISTURBANCE [None]
